FAERS Safety Report 6084396-3 (Version None)
Quarter: 2009Q1

REPORT INFORMATION
  Report Type: 
  Country: None (occurrence: None)
  Receive Date: 20090219
  Receipt Date: 20090213
  Transmission Date: 20090719
  Serious: Yes (Hospitalization)
  Sender: FDA-Public Use
  Company Number: A0769359A

PATIENT
  Age: 43 Year
  Sex: Male
  Weight: 93.2 kg

DRUGS (2)
  1. AVANDAMET [Suspect]
     Route: 048
     Dates: start: 20031104, end: 20060206
  2. AVANDIA [Suspect]
     Dosage: 2MG TWICE PER DAY
     Route: 048
     Dates: start: 20040218, end: 20061222

REACTIONS (3)
  - CEREBROVASCULAR ACCIDENT [None]
  - CONDITION AGGRAVATED [None]
  - MYOCARDIAL INFARCTION [None]
